FAERS Safety Report 10510945 (Version 2)
Quarter: 2015Q4

REPORT INFORMATION
  Report Type: Report from Study
  Country: US (occurrence: US)
  Receive Date: 20141010
  Receipt Date: 20151229
  Transmission Date: 20160304
  Serious: Yes (Death, Other)
  Sender: FDA-Public Use
  Company Number: US-AMGEN-USASL2014078027

PATIENT
  Age: 74 Year
  Sex: Male

DRUGS (40)
  1. NEULASTA [Suspect]
     Active Substance: PEGFILGRASTIM
     Indication: ANAEMIA
     Dosage: UNK
     Route: 058
     Dates: start: 20110823, end: 20111220
  2. AMBIEN [Concomitant]
     Active Substance: ZOLPIDEM TARTRATE
     Dosage: 10 MG
     Route: 048
     Dates: start: 20120120, end: 20120210
  3. DIPHENHYDRAMINE HCL [Concomitant]
     Active Substance: DIPHENHYDRAMINE HYDROCHLORIDE
     Dosage: 25 IU, 1 IN 1 D
     Route: 042
     Dates: start: 20111107, end: 20120103
  4. FAMOTIDINE. [Concomitant]
     Active Substance: FAMOTIDINE
     Dosage: 20 MG, 1 IN 1 D
     Route: 042
  5. FERRLECIT                          /00023541/ [Concomitant]
     Dosage: 125 MG, UNK
     Route: 042
     Dates: start: 20111107, end: 20120103
  6. KEFLEX [Concomitant]
     Active Substance: CEPHALEXIN
     Dosage: FOR 7 DAYS (500 MG, 4 IN 1 D)
     Route: 048
     Dates: start: 20111111, end: 20111118
  7. TARCEVA [Suspect]
     Active Substance: ERLOTINIB HYDROCHLORIDE
     Indication: LUNG NEOPLASM MALIGNANT
     Dosage: 150 MG, 1 IN 1 D
     Route: 048
     Dates: start: 20120619
  8. KYTRIL [Suspect]
     Active Substance: GRANISETRON HYDROCHLORIDE
     Indication: PRODUCT USED FOR UNKNOWN INDICATION
     Dosage: UNK
     Route: 042
     Dates: start: 20120120, end: 20120120
  9. PRED FORTE [Concomitant]
     Active Substance: PREDNISOLONE ACETATE
     Dosage: UNK
     Dates: start: 20111111
  10. SUCRALFATE. [Concomitant]
     Active Substance: SUCRALFATE
     Dosage: UNK
     Dates: start: 20120130
  11. XALATAN [Concomitant]
     Active Substance: LATANOPROST
     Dosage: 0.005 %
  12. ACETAMINOPHEN. [Concomitant]
     Active Substance: ACETAMINOPHEN
     Dosage: 1000 MG, 1 IN 1 D
     Route: 048
     Dates: start: 20111107, end: 20120103
  13. LEVAQUIN [Concomitant]
     Active Substance: LEVOFLOXACIN
     Dosage: FOR 5 DAYS (500 MG, 1 IN 1 D)
     Route: 048
     Dates: start: 20110902, end: 20110907
  14. NEULASTA [Suspect]
     Active Substance: PEGFILGRASTIM
     Indication: THROMBOCYTOPENIA
  15. XGEVA [Concomitant]
     Active Substance: DENOSUMAB
     Dosage: FOR 1 DAY (120 MG, 1 IN 1 D)
     Route: 058
     Dates: start: 20120619, end: 20120619
  16. CARBOPLATIN. [Concomitant]
     Active Substance: CARBOPLATIN
     Dosage: UNK
     Dates: start: 20110822
  17. DIFLUCAN [Concomitant]
     Active Substance: FLUCONAZOLE
     Dosage: UNK
     Dates: start: 20120706
  18. COMPAZINE                          /00013304/ [Concomitant]
     Active Substance: PROCHLORPERAZINE MALEATE
     Dosage: UNK
     Dates: start: 20110819
  19. DEXAMETHASONE. [Concomitant]
     Active Substance: DEXAMETHASONE
     Dosage: UNK
     Dates: start: 20110819
  20. FISH OIL [Concomitant]
     Active Substance: FISH OIL
     Dosage: 1 IN 1 D
     Route: 048
  21. PLETAL [Concomitant]
     Active Substance: CILOSTAZOL
     Dosage: 100 MG, 2 IN 1 D
     Route: 048
  22. RESTORIL                           /00393701/ [Concomitant]
     Dosage: 30 MG, UNK
     Route: 048
     Dates: start: 20120210, end: 20120510
  23. TUSSIONEX PENNKINETIC [Concomitant]
     Active Substance: CHLORPHENIRAMINE\HYDROCODONE
     Dosage: UNK
     Dates: start: 20120402
  24. ZOFRAN [Concomitant]
     Active Substance: ONDANSETRON HYDROCHLORIDE
     Dosage: UNK
     Dates: start: 20120120
  25. PROMETHAZINE [Concomitant]
     Active Substance: PROMETHAZINE\PROMETHAZINE HYDROCHLORIDE
     Dosage: 12.5 - 50 MG, FOR 1 DAY (1 IN 1 D)
     Route: 042
     Dates: start: 20120120, end: 20120120
  26. ALOXI [Concomitant]
     Active Substance: PALONOSETRON HYDROCHLORIDE
     Dosage: UNK
     Dates: start: 20110822
  27. LORTAB [Concomitant]
     Active Substance: ACETAMINOPHEN\HYDROCODONE BITARTRATE
     Dosage: UNK
     Dates: start: 20111019
  28. MAGNESIUM OXIDE. [Concomitant]
     Active Substance: MAGNESIUM OXIDE
     Dosage: 800 MG (400 MG, 2 IN 1 D)
     Dates: start: 20120619
  29. RAMIPRIL. [Concomitant]
     Active Substance: RAMIPRIL
     Dosage: 5 MG, 1 IN 1 D
     Route: 048
  30. DIFLUCAN [Concomitant]
     Active Substance: FLUCONAZOLE
     Dosage: UNK
     Dates: start: 20110919
  31. DEXAMETHASONE SODIUM PHOSPHATE. [Concomitant]
     Active Substance: DEXAMETHASONE SODIUM PHOSPHATE
     Dosage: UNK
     Dates: start: 20110822
  32. LIDOCAINE HCL [Concomitant]
     Active Substance: LIDOCAINE HYDROCHLORIDE
     Dosage: UNK
     Dates: start: 20120625
  33. ASPIRIN                            /00002701/ [Concomitant]
     Active Substance: ASPIRIN
     Dosage: 81 MG, 1 IN 1 D
     Route: 048
  34. METOPROLOL SUCCINATE. [Concomitant]
     Active Substance: METOPROLOL SUCCINATE
     Dosage: 25 MG, 1 IN 1 D
     Route: 048
  35. VANCOMYCIN [Concomitant]
     Active Substance: VANCOMYCIN
     Dosage: 1000-2000 MG OF (50 MG/ML) (1 IN 1 D)
     Route: 042
     Dates: start: 20110829, end: 20110902
  36. ZOCOR [Concomitant]
     Active Substance: SIMVASTATIN
     Dosage: 40 MG, 1 IN 1 D
     Route: 048
  37. EMEND [Concomitant]
     Active Substance: APREPITANT
     Dosage: 150 MG, 1 IN 1 D
     Route: 042
     Dates: start: 20110822, end: 20111219
  38. INVANZ [Concomitant]
     Active Substance: ERTAPENEM SODIUM
     Dosage: 1000 MG, 1 IN 1 D
     Route: 042
     Dates: start: 20110829, end: 20110902
  39. TAXOTERE [Concomitant]
     Active Substance: DOCETAXEL
     Dosage: 140 MG, 1 IN 1 D
     Route: 042
     Dates: start: 20110822, end: 20111219
  40. VALTREX [Concomitant]
     Active Substance: VALACYCLOVIR HYDROCHLORIDE
     Dosage: FOR 5 DAYS (500 MG, 2 IN 1 D)
     Route: 048
     Dates: start: 20111223, end: 20111228

REACTIONS (7)
  - Metastases to bone marrow [Unknown]
  - Oral pain [Unknown]
  - Death [Fatal]
  - Neuropathy peripheral [Unknown]
  - Oral candidiasis [Unknown]
  - Metastases to spine [Unknown]
  - Diarrhoea [Unknown]

NARRATIVE: CASE EVENT DATE: 20111031
